FAERS Safety Report 9876610 (Version 2)
Quarter: 2014Q1

REPORT INFORMATION
  Report Type: Other
  Country: US (occurrence: US)
  Receive Date: 20140206
  Receipt Date: 20140206
  Transmission Date: 20141002
  Serious: No
  Sender: FDA-Public Use
  Company Number: US-ACORDA-ACO_36825_2013

PATIENT
  Age: 52 Year
  Sex: Male
  Weight: 59.86 kg

DRUGS (4)
  1. AMPYRA [Suspect]
     Indication: GAIT DISTURBANCE
     Dosage: 10 MG, BID
     Route: 048
     Dates: start: 201305, end: 201307
  2. COPAXONE [Concomitant]
     Indication: MULTIPLE SCLEROSIS
     Dosage: 1 DF, QD
     Route: 058
  3. TEMAZEPAM [Concomitant]
     Indication: INSOMNIA
     Dosage: 15 MG, QD HS
     Route: 048
  4. VENLAFAXINE [Concomitant]
     Indication: DEPRESSION
     Dosage: 75 MG, QD AM
     Route: 048

REACTIONS (1)
  - Gait disturbance [Not Recovered/Not Resolved]
